FAERS Safety Report 24634353 (Version 1)
Quarter: 2024Q4

REPORT INFORMATION
  Report Type: Spontaneous
  Country: US (occurrence: US)
  Receive Date: 20241119
  Receipt Date: 20241119
  Transmission Date: 20250114
  Serious: No
  Sender: VERTEX
  Company Number: US-VERTEX PHARMACEUTICALS-2024-017744

PATIENT
  Age: 69 Year
  Sex: Male

DRUGS (1)
  1. KALYDECO [Suspect]
     Active Substance: IVACAFTOR
     Indication: Cystic fibrosis
     Dosage: 150 MG TABLETS
     Route: 048
     Dates: start: 2024

REACTIONS (2)
  - Lung opacity [Unknown]
  - Infection [Unknown]

NARRATIVE: CASE EVENT DATE: 20240101
